FAERS Safety Report 17299169 (Version 1)
Quarter: 2020Q1

REPORT INFORMATION
  Report Type: Spontaneous
  Country: US (occurrence: US)
  Receive Date: 20200121
  Receipt Date: 20200121
  Transmission Date: 20200409
  Serious: Yes (Disabling)
  Sender: FDA-Public Use
  Company Number: None

PATIENT
  Age: 63 Year
  Sex: Female
  Weight: 54 kg

DRUGS (12)
  1. OMEPRAZOLE DR 40 MG CAPSULE [Suspect]
     Active Substance: OMEPRAZOLE
     Indication: REFLUX LARYNGITIS
     Dosage: ?          QUANTITY:1 CAPSULE(S);?
     Route: 048
  2. FLOVENT [Concomitant]
     Active Substance: FLUTICASONE PROPIONATE
  3. CALCIUM AND MAGMNESIUM [Concomitant]
  4. BETAMETHASONE. [Concomitant]
     Active Substance: BETAMETHASONE
  5. IMITREX [Concomitant]
     Active Substance: SUMATRIPTAN SUCCINATE
  6. LUTEIN +ZEAXANTHIN [Concomitant]
  7. PROBOITIC [Concomitant]
  8. VITAMIN D 1000U [Concomitant]
  9. OMEPRAZOLE. [Concomitant]
     Active Substance: OMEPRAZOLE
  10. VAGIFEM [Concomitant]
     Active Substance: ESTRADIOL
  11. MULTIVITAMIN [Concomitant]
     Active Substance: VITAMINS
  12. VENTOLIN [Concomitant]
     Active Substance: ALBUTEROL SULFATE

REACTIONS (3)
  - Product substitution issue [None]
  - Dyspepsia [None]
  - Cough [None]

NARRATIVE: CASE EVENT DATE: 20191201
